FAERS Safety Report 13145174 (Version 2)
Quarter: 2017Q1

REPORT INFORMATION
  Report Type: Spontaneous
  Country: US (occurrence: US)
  Receive Date: 20170124
  Receipt Date: 20170207
  Transmission Date: 20170428
  Serious: Yes (Hospitalization)
  Sender: FDA-Public Use
  Company Number: US-AUROBINDO-AUR-APL-2017-16196

PATIENT
  Age: 13 Year

DRUGS (4)
  1. TACROLIMUS. [Interacting]
     Active Substance: TACROLIMUS
     Indication: PRODUCT USED FOR UNKNOWN INDICATION
     Dosage: 1.5 MG, TWO TIMES A DAY
     Route: 048
  2. TACROLIMUS. [Interacting]
     Active Substance: TACROLIMUS
     Dosage: 2 MG, TWO TIMES A DAY
     Route: 048
  3. TMP-SMX [Interacting]
     Active Substance: SULFAMETHOXAZOLE\TRIMETHOPRIM
     Indication: PRODUCT USED FOR UNKNOWN INDICATION
     Route: 048
  4. NAFICILLIN [Suspect]
     Active Substance: NAFCILLIN\NAFCILLIN SODIUM
     Indication: PRODUCT USED FOR UNKNOWN INDICATION
     Route: 042

REACTIONS (4)
  - Haemoptysis [Recovered/Resolved]
  - Chest pain [Recovered/Resolved]
  - Drug level below therapeutic [Recovered/Resolved]
  - Drug interaction [Recovered/Resolved]
